FAERS Safety Report 18589070 (Version 7)
Quarter: 2022Q3

REPORT INFORMATION
  Report Type: Other
  Country: US (occurrence: None)
  Receive Date: 20201208
  Receipt Date: 20220803
  Transmission Date: 20221026
  Serious: Yes (Other)
  Sender: FDA-Public Use
  Company Number: US-ROCHE-2725482

PATIENT
  Age: 33 Year
  Sex: Female
  Weight: 45.400 kg

DRUGS (5)
  1. XOLAIR [Suspect]
     Active Substance: OMALIZUMAB
     Indication: Idiopathic urticaria
     Route: 058
     Dates: start: 20180711
  2. XOLAIR [Suspect]
     Active Substance: OMALIZUMAB
     Indication: Urticaria
  3. XOLAIR [Suspect]
     Active Substance: OMALIZUMAB
     Indication: Asthma
  4. HYDROXYZINE HYDROCHLORIDE [Concomitant]
     Active Substance: HYDROXYZINE HYDROCHLORIDE
     Dosage: 50 MG Q 6H
  5. PEPCID [Concomitant]
     Active Substance: FAMOTIDINE
     Dosage: 20MG BID

REACTIONS (9)
  - Breast cancer [Recovered/Resolved]
  - Anaphylactic shock [Not Recovered/Not Resolved]
  - Angioedema [Unknown]
  - Sleep apnoea syndrome [Not Recovered/Not Resolved]
  - Fat necrosis [Unknown]
  - Panic attack [Not Recovered/Not Resolved]
  - Paralysis [Recovered/Resolved]
  - Anxiety [Not Recovered/Not Resolved]
  - Drug ineffective [Unknown]

NARRATIVE: CASE EVENT DATE: 20190802
